FAERS Safety Report 19411268 (Version 1)
Quarter: 2021Q2

REPORT INFORMATION
  Report Type: Report from Study
  Country: IT (occurrence: IT)
  Receive Date: 20210614
  Receipt Date: 20210614
  Transmission Date: 20210717
  Serious: Yes (Other)
  Sender: FDA-Public Use
  Company Number: IT-GLAXOSMITHKLINE-IT2021EME126899

PATIENT
  Sex: Female

DRUGS (2)
  1. NIRAPARIB [Suspect]
     Active Substance: NIRAPARIB
     Indication: OVARIAN CANCER
     Dosage: 2 CAPSULES, QD
     Route: 048
     Dates: start: 20201001, end: 20201024
  2. NIRAPARIB [Suspect]
     Active Substance: NIRAPARIB
     Dosage: 1 CAPSULES, QD
     Route: 048
     Dates: start: 20201102

REACTIONS (2)
  - Carbohydrate antigen 125 increased [Unknown]
  - Malignant peritoneal neoplasm [Unknown]

NARRATIVE: CASE EVENT DATE: 20210226
